FAERS Safety Report 7806051-9 (Version None)
Quarter: 2011Q4

REPORT INFORMATION
  Report Type: 
  Country: None (occurrence: None)
  Receive Date: 20111011
  Receipt Date: 20110930
  Transmission Date: 20120403
  Serious: Yes (Other)
  Sender: FDA-Public Use
  Company Number: US-JNJFOC-20111001381

PATIENT
  Sex: Female
  Weight: 56.25 kg

DRUGS (7)
  1. LISINOPRIL [Concomitant]
     Indication: BLOOD PRESSURE
     Dosage: 5/325MG/EVERY 4 HOURS AS NEEDED
     Route: 048
     Dates: start: 20060101
  2. CARVEDILOL [Concomitant]
     Indication: BLOOD PRESSURE
     Dosage: 5/325MG/EVERY 4 HOURS AS NEEDED
     Route: 048
     Dates: start: 20110601
  3. TOPAMAX [Suspect]
     Indication: MIGRAINE
     Route: 048
     Dates: start: 20110701, end: 20110801
  4. ZANAFLEX [Concomitant]
     Indication: MUSCLE ATROPHY
     Dosage: EVERY EIGHT HOURS AS NEEDED
     Route: 048
     Dates: start: 19960101
  5. TOPAMAX [Suspect]
     Route: 048
     Dates: start: 20110802
  6. OXYCODONE HCL [Concomitant]
     Indication: PAIN
     Dosage: 5/325MG/EVERY 4 HOURS AS NEEDED
     Route: 048
     Dates: start: 19960101
  7. CHLORTHALIDONE [Concomitant]
     Indication: HYPERTENSION
     Dosage: AS NEEDED
     Route: 048
     Dates: start: 19960101

REACTIONS (12)
  - FEELING COLD [None]
  - GAIT DISTURBANCE [None]
  - BLOOD PRESSURE DECREASED [None]
  - MUSCLE TWITCHING [None]
  - ABNORMAL LOSS OF WEIGHT [None]
  - MENTAL IMPAIRMENT [None]
  - TREATMENT NONCOMPLIANCE [None]
  - DYSPHONIA [None]
  - DYSGEUSIA [None]
  - BEDRIDDEN [None]
  - APHONIA [None]
  - HYPOAESTHESIA [None]
